FAERS Safety Report 5045548-4 (Version None)
Quarter: 2006Q2

REPORT INFORMATION
  Report Type: 
  Country: None (occurrence: None)
  Receive Date: 20060601
  Receipt Date: 20060406
  Transmission Date: 20061013
  Serious: No
  Sender: FDA-Public Use
  Company Number: 2006-BP-03389BP

PATIENT
  Sex: Male

DRUGS (8)
  1. SPIRIVA [Suspect]
     Indication: CHRONIC OBSTRUCTIVE PULMONARY DISEASE
     Dosage: 18 MCG (18 MCG 1 IN 1 D), IH
     Route: 055
  2. FORADIL [Concomitant]
  3. LISINOPRIL [Concomitant]
  4. PRIMIDONE [Concomitant]
  5. PROZAC [Concomitant]
  6. ASPIRIN [Concomitant]
  7. KLONOPIN [Concomitant]
  8. MYSOLINE [Concomitant]

REACTIONS (3)
  - DIZZINESS [None]
  - DRY MOUTH [None]
  - NAUSEA [None]
